FAERS Safety Report 4406089-8 (Version None)
Quarter: 2004Q3

REPORT INFORMATION
  Report Type: 
  Country: None (occurrence: None)
  Receive Date: 20040723
  Receipt Date: 20040422
  Transmission Date: 20050211
  Serious: No
  Sender: FDA-Public Use
  Company Number: US-GLAXOSMITHKLINE-A0508068A

PATIENT
  Age: 51 Year
  Sex: Female

DRUGS (5)
  1. AVANDIA [Suspect]
     Dosage: 6MG PER DAY
     Route: 048
  2. METFORMIN HCL [Concomitant]
  3. CLARITIN [Concomitant]
  4. LOVASTATIN [Concomitant]
  5. ADALAT [Concomitant]

REACTIONS (1)
  - DRUG INEFFECTIVE [None]
